FAERS Safety Report 13206024 (Version 1)
Quarter: 2017Q1

REPORT INFORMATION
  Report Type: Spontaneous
  Country: US (occurrence: US)
  Receive Date: 20170208
  Receipt Date: 20170208
  Transmission Date: 20170428
  Serious: Yes (Death)
  Sender: FDA-Public Use
  Company Number: None

PATIENT
  Age: 69 Year
  Sex: Female
  Weight: 67.5 kg

DRUGS (1)
  1. FOSAMAX [Suspect]
     Active Substance: ALENDRONATE SODIUM
     Indication: OSTEOPOROSIS

REACTIONS (4)
  - Oesophageal adenocarcinoma stage IV [None]
  - Thoracic vertebral fracture [None]
  - Dysphagia [None]
  - Metastases to bone [None]

NARRATIVE: CASE EVENT DATE: 20160928
